FAERS Safety Report 19177453 (Version 1)
Quarter: 2021Q2

REPORT INFORMATION
  Report Type: Spontaneous
  Country: US (occurrence: US)
  Receive Date: 20210423
  Receipt Date: 20210423
  Transmission Date: 20210717
  Serious: Yes (Hospitalization)
  Sender: FDA-Public Use
  Company Number: None

PATIENT
  Age: 55 Year
  Sex: Male

DRUGS (3)
  1. BAMLANIVIMAB. [Suspect]
     Active Substance: BAMLANIVIMAB
     Dates: start: 20201220
  2. IBRUTINIB [Concomitant]
     Active Substance: IBRUTINIB
  3. VENETOCLAX. [Concomitant]
     Active Substance: VENETOCLAX

REACTIONS (3)
  - COVID-19 [None]
  - Dyspnoea [None]
  - Cough [None]
